FAERS Safety Report 5482731-8 (Version None)
Quarter: 2007Q4

REPORT INFORMATION
  Report Type: 
  Country: None (occurrence: None)
  Receive Date: 20071011
  Receipt Date: 20071001
  Transmission Date: 20080405
  Serious: Yes (Disabling)
  Sender: FDA-Public Use
  Company Number: US-PFIZER INC-2004077761

PATIENT
  Sex: Female

DRUGS (5)
  1. ACCUPRIL [Suspect]
     Indication: HYPERTENSION
     Route: 048
  2. CATAPRES [Concomitant]
  3. DYNACIRC [Concomitant]
  4. AMILORIDE HYDROCHLORIDE [Concomitant]
  5. LASIX [Concomitant]

REACTIONS (4)
  - JOINT EFFUSION [None]
  - JOINT SPRAIN [None]
  - OESOPHAGEAL SPASM [None]
  - PAIN IN EXTREMITY [None]
